FAERS Safety Report 4607807-6 (Version None)
Quarter: 2005Q1

REPORT INFORMATION
  Report Type: 
  Country: None (occurrence: None)
  Receive Date: 20050310
  Receipt Date: 20050301
  Transmission Date: 20050727
  Serious: Yes (Hospitalization)
  Sender: FDA-Public Use
  Company Number: SEWYE474703MAR05

PATIENT
  Age: 80 Year
  Sex: Female

DRUGS (3)
  1. EFFEXOR [Suspect]
     Indication: DEPRESSION
     Dosage: 75 MG 1X PER 1 DAY; ORAL
     Route: 048
     Dates: end: 20041101
  2. EFFEXOR [Suspect]
     Dosage: 37.5 MG 1X PER 1 DAY; ORAL
     Route: 048
     Dates: start: 20041101
  3. FUROSEMIDE [Concomitant]

REACTIONS (2)
  - BALANCE DISORDER [None]
  - MUSCLE SPASMS [None]
